FAERS Safety Report 9371012 (Version 1)
Quarter: 2013Q2

REPORT INFORMATION
  Report Type: Spontaneous
  Country: US (occurrence: US)
  Receive Date: 20130627
  Receipt Date: 20130627
  Transmission Date: 20140414
  Serious: Yes (Other)
  Sender: FDA-Public Use
  Company Number: US-ROCHE-1240804

PATIENT
  Age: 60 Year
  Sex: Female
  Weight: 47.63 kg

DRUGS (6)
  1. XELODA [Suspect]
     Indication: PRODUCT USED FOR UNKNOWN INDICATION
     Route: 065
  2. TYKERB [Suspect]
     Indication: BREAST CANCER
     Route: 048
  3. LIGNOCAINE HYDROCHLORIDE [Concomitant]
  4. ZOMETA [Concomitant]
  5. ZOFRAN [Concomitant]
  6. ALEVE [Concomitant]

REACTIONS (16)
  - Palmar-plantar erythrodysaesthesia syndrome [Not Recovered/Not Resolved]
  - Skin burning sensation [Not Recovered/Not Resolved]
  - Rash [Not Recovered/Not Resolved]
  - Pruritus [Not Recovered/Not Resolved]
  - Erythema [Not Recovered/Not Resolved]
  - Fatigue [Unknown]
  - Insomnia [Unknown]
  - Diarrhoea [Unknown]
  - Weight decreased [Unknown]
  - Decreased appetite [Unknown]
  - Limb injury [Unknown]
  - Neuropathy peripheral [Unknown]
  - Balance disorder [Unknown]
  - Dry skin [Unknown]
  - Pain of skin [Unknown]
  - Staphylococcal infection [Unknown]
